FAERS Safety Report 6165837-X (Version None)
Quarter: 2009Q2

REPORT INFORMATION
  Report Type: 
  Country: None (occurrence: None)
  Receive Date: 20090423
  Receipt Date: 20090416
  Transmission Date: 20091009
  Serious: Yes (Other)
  Sender: FDA-Public Use
  Company Number: US-PFIZER INC-2007080693

PATIENT
  Sex: Female
  Weight: 65 kg

DRUGS (5)
  1. CHANTIX [Suspect]
     Indication: EX-TOBACCO USER
     Dosage: 1 MG, 2X/DAY
     Dates: start: 20070801, end: 20070912
  2. CHANTIX [Suspect]
     Indication: SMOKING CESSATION THERAPY
  3. VYTORIN [Concomitant]
  4. LEVOXYL [Concomitant]
  5. HYDROCHLOROTHIAZIDE [Concomitant]

REACTIONS (3)
  - ANXIETY [None]
  - PANIC ATTACK [None]
  - SOMNOLENCE [None]
